FAERS Safety Report 9463979 (Version 3)
Quarter: 2014Q3

REPORT INFORMATION
  Report Type: Spontaneous
  Country: US (occurrence: US)
  Receive Date: 20130819
  Receipt Date: 20140812
  Transmission Date: 20150326
  Serious: No
  Sender: FDA-Public Use
  Company Number: US-BRISTOL-MYERS SQUIBB COMPANY-17038563

PATIENT
  Age: 52 Year
  Sex: Female
  Weight: 72.56 kg

DRUGS (5)
  1. NORVIR [Suspect]
     Active Substance: RITONAVIR
  2. REYATAZ [Suspect]
     Active Substance: ATAZANAVIR SULFATE
     Indication: HIV INFECTION
     Dosage: DURATN: 5 TO 6 MNTHS
     Route: 048
     Dates: start: 2013
  3. TRUVADA [Suspect]
     Active Substance: EMTRICITABINE\TENOFOVIR DISOPROXIL FUMARATE
     Dosage: ALSO TAKEN AS CONCOMITANT
  4. VIREAD [Concomitant]
     Active Substance: TENOFOVIR DISOPROXIL FUMARATE
  5. NORVIR [Concomitant]
     Active Substance: RITONAVIR

REACTIONS (8)
  - Abnormal dreams [Unknown]
  - Pruritus [Not Recovered/Not Resolved]
  - Skin hypopigmentation [Unknown]
  - Paraesthesia [Unknown]
  - Oropharyngeal pain [Unknown]
  - Swelling face [Unknown]
  - Burning sensation [Not Recovered/Not Resolved]
  - Pain in extremity [Not Recovered/Not Resolved]
